FAERS Safety Report 13082262 (Version 2)
Quarter: 2017Q1

REPORT INFORMATION
  Report Type: Spontaneous
  Country: US (occurrence: US)
  Receive Date: 20170103
  Receipt Date: 20170117
  Transmission Date: 20170428
  Serious: Yes (Hospitalization)
  Sender: FDA-Public Use
  Company Number: US-SMITH AND NEPHEW, INC-2016SMT01126

PATIENT
  Age: 36 Year
  Sex: Female

DRUGS (1)
  1. REGRANEX [Suspect]
     Active Substance: BECAPLERMIN
     Indication: SKIN ULCER
     Dosage: UNK, 1X/DAY
     Route: 061
     Dates: start: 201611, end: 20161207

REACTIONS (3)
  - Wound infection [Recovered/Resolved]
  - Off label use [Recovered/Resolved]
  - Impaired healing [Recovering/Resolving]

NARRATIVE: CASE EVENT DATE: 201611
